FAERS Safety Report 15718997 (Version 1)
Quarter: 2018Q4

REPORT INFORMATION
  Report Type: Spontaneous
  Country: US (occurrence: US)
  Receive Date: 20181207
  Receipt Date: 20181207
  Transmission Date: 20190205
  Serious: Yes (Other)
  Sender: FDA-Public Use
  Company Number: None

PATIENT
  Age: 58 Year
  Sex: Female
  Weight: 73.94 kg

DRUGS (1)
  1. SUBOXONE [Suspect]
     Active Substance: BUPRENORPHINE HYDROCHLORIDE\NALOXONE HYDROCHLORIDE
     Indication: DRUG USE DISORDER
     Dosage: 4-1 MG BID SUBLINGUAL
     Route: 060
     Dates: start: 20180928, end: 20181130

REACTIONS (8)
  - Nausea [None]
  - Vomiting [None]
  - Abdominal pain [None]
  - Drug dependence [None]
  - Rash [None]
  - Urticaria [None]
  - Anal incontinence [None]
  - Condition aggravated [None]

NARRATIVE: CASE EVENT DATE: 20181115
